FAERS Safety Report 8215203-8 (Version None)
Quarter: 2012Q1

REPORT INFORMATION
  Report Type: 
  Country: None (occurrence: None)
  Receive Date: 20120316
  Receipt Date: 20120305
  Transmission Date: 20120608
  Serious: No
  Sender: FDA-Public Use
  Company Number: US-B.I. PHARMACEUTICALS,INC./RIDGEFIELD-2012-BP-04211BP

PATIENT
  Sex: Female

DRUGS (7)
  1. LISINOPRIL [Concomitant]
     Indication: HYPERTENSION
     Route: 048
  2. PRADAXA [Suspect]
     Indication: ATRIAL FIBRILLATION
     Dosage: 300 MG
     Route: 048
     Dates: start: 20110601
  3. LISINOPRIL [Concomitant]
     Dosage: 480 MG
     Route: 048
     Dates: end: 20110701
  4. VITAMIN D [Concomitant]
     Dosage: 480 MG
     Route: 048
     Dates: end: 20110701
  5. CALAN [Concomitant]
     Indication: HYPERTENSION
     Route: 048
     Dates: start: 20110701
  6. CALAN [Concomitant]
     Indication: HEART RATE INCREASED
     Dosage: 480 MG
     Route: 048
     Dates: end: 20110701
  7. VITAMIN D [Concomitant]
     Indication: PROPHYLAXIS
     Route: 048

REACTIONS (1)
  - HYPOTENSION [None]
